FAERS Safety Report 24146512 (Version 1)
Quarter: 2024Q3

REPORT INFORMATION
  Report Type: Report from Study
  Country: PT (occurrence: PT)
  Receive Date: 20240729
  Receipt Date: 20240729
  Transmission Date: 20241017
  Serious: Yes (Life-Threatening, Hospitalization)
  Sender: MYLAN
  Company Number: PT-MYLANLABS-2024M1069242

PATIENT
  Sex: Female

DRUGS (2)
  1. ROPIVACAINE [Suspect]
     Active Substance: ROPIVACAINE
     Indication: Epidural analgesia
     Dosage: UNK
     Route: 008
  2. LIDOCAINE [Suspect]
     Active Substance: LIDOCAINE
     Indication: Epidural test dose
     Dosage: BOLUS
     Route: 008

REACTIONS (3)
  - Respiratory distress [Unknown]
  - Device placement issue [Unknown]
  - Maternal exposure during delivery [Unknown]
